FAERS Safety Report 4810925-0 (Version None)
Quarter: 2005Q4

REPORT INFORMATION
  Report Type: 
  Country: None (occurrence: None)
  Receive Date: 20051025
  Receipt Date: 20051025
  Transmission Date: 20060501
  Serious: Yes (Hospitalization, Other)
  Sender: FDA-Public Use
  Company Number: None

PATIENT
  Sex: Male
  Weight: 82.2 kg

DRUGS (6)
  1. DAUNOMYCIN [Suspect]
     Indication: ACUTE LYMPHOCYTIC LEUKAEMIA
     Dosage: SEE IMAGE
     Route: 042
     Dates: end: 20050929
  2. DAUNOMYCIN [Suspect]
     Indication: ACUTE LYMPHOCYTIC LEUKAEMIA
     Dosage: SEE IMAGE
     Route: 042
     Dates: start: 20050915
  3. VINCRISTINE SULFATE [Suspect]
     Dosage: SEE IMAGE
     Route: 042
     Dates: end: 20050929
  4. PREDNISONE [Suspect]
     Dosage: SEE IMAGE
     Route: 048
     Dates: end: 20051018
  5. L-ASPARAGINASE [Suspect]
     Dosage: SEE IMAGE
     Route: 042
     Dates: end: 20050918
  6. METHOTREXATE [Suspect]
     Dosage: SEE IMAGE
     Route: 037
     Dates: end: 20051007

REACTIONS (2)
  - COLITIS [None]
  - PNEUMOTHORAX [None]
